FAERS Safety Report 9575278 (Version 2)
Quarter: 2014Q1

REPORT INFORMATION
  Report Type: Spontaneous
  Country: US (occurrence: US)
  Receive Date: 20131001
  Receipt Date: 20140116
  Transmission Date: 20141002
  Serious: Yes (Hospitalization, Other)
  Sender: FDA-Public Use
  Company Number: US-GILEAD-2013-0084438

PATIENT
  Sex: Male

DRUGS (2)
  1. LETAIRIS [Suspect]
     Indication: PRODUCT USED FOR UNKNOWN INDICATION
     Dosage: 5 MG, QD
     Dates: start: 20130312
  2. REVATIO [Concomitant]

REACTIONS (4)
  - Cardiac failure congestive [Unknown]
  - Intestinal obstruction [Unknown]
  - Hernia [Unknown]
  - Local swelling [Unknown]
